FAERS Safety Report 16713200 (Version 1)
Quarter: 2019Q3

REPORT INFORMATION
  Report Type: Spontaneous
  Country: US (occurrence: US)
  Receive Date: 20190817
  Receipt Date: 20190817
  Transmission Date: 20191004
  Serious: No
  Sender: FDA-Public Use
  Company Number: US-TAKEDA-2019TUS048170

PATIENT
  Age: 84 Year
  Sex: Female

DRUGS (1)
  1. NINLARO [Suspect]
     Active Substance: IXAZOMIB CITRATE
     Indication: PLASMA CELL MYELOMA
     Dosage: 3 MILLIGRAM, 1/WEEK
     Route: 048
     Dates: start: 20190802

REACTIONS (4)
  - Adverse reaction [Unknown]
  - Headache [Unknown]
  - Neurotoxicity [Unknown]
  - Confusional state [Unknown]

NARRATIVE: CASE EVENT DATE: 201908
